FAERS Safety Report 21580685 (Version 2)
Quarter: 2022Q4

REPORT INFORMATION
  Report Type: Report from Study
  Country: US (occurrence: None)
  Receive Date: 20221111
  Receipt Date: 20221227
  Transmission Date: 20230113
  Serious: Yes (Death)
  Sender: FDA-Public Use
  Company Number: 2022A368591

PATIENT
  Age: 31769 Day
  Sex: Female
  Weight: 71.2 kg

DRUGS (1)
  1. CALQUENCE [Suspect]
     Active Substance: ACALABRUTINIB
     Indication: Chronic leukaemia
     Route: 048

REACTIONS (2)
  - Death [Fatal]
  - Personality disorder [Unknown]

NARRATIVE: CASE EVENT DATE: 20220915
